FAERS Safety Report 7273345-8 (Version None)
Quarter: 2011Q1

REPORT INFORMATION
  Report Type: 
  Country: None (occurrence: None)
  Receive Date: 20110203
  Receipt Date: 20101026
  Transmission Date: 20110831
  Serious: No
  Sender: FDA-Public Use
  Company Number: US-ABBOTT-10P-163-0681761-00

PATIENT
  Sex: Female
  Weight: 55.842 kg

DRUGS (11)
  1. SYNTHROID [Suspect]
     Dates: start: 20101018
  2. SYNTHROID [Suspect]
     Indication: THYROIDECTOMY
     Dates: start: 20100801, end: 20101001
  3. LIPITOR [Concomitant]
     Indication: BLOOD CHOLESTEROL INCREASED
  4. CITRACAL [Concomitant]
     Indication: BONE DISORDER
  5. VITAMIN D [Concomitant]
     Indication: VITAMIN SUPPLEMENTATION
  6. CALCIUM [Concomitant]
     Indication: MINERAL SUPPLEMENTATION
  7. MULTI-VITAMIN [Concomitant]
     Indication: VITAMIN SUPPLEMENTATION
  8. CRANBERRY [Concomitant]
     Indication: URINARY TRACT INFECTION
  9. ATENOLOL [Concomitant]
     Indication: HYPERTENSION
  10. SYNTHROID [Suspect]
     Dates: start: 20101001, end: 20101018
  11. ACIDOPHILUS [Concomitant]
     Indication: PRODUCT USED FOR UNKNOWN INDICATION

REACTIONS (2)
  - FATIGUE [None]
  - FEELING ABNORMAL [None]
